FAERS Safety Report 5787139-3 (Version None)
Quarter: 2008Q2

REPORT INFORMATION
  Report Type: 
  Country: None (occurrence: None)
  Receive Date: 20080625
  Receipt Date: 20070920
  Transmission Date: 20081010
  Serious: No
  Sender: FDA-Public Use
  Company Number: US-ASTRAZENECA-2007UW22204

PATIENT
  Age: 73 Year
  Sex: Female
  Weight: 63.6 kg

DRUGS (2)
  1. PULMICORT RESPULES [Suspect]
     Indication: ASTHMA
     Route: 055
     Dates: start: 20070201
  2. XOPENEX [Suspect]
     Indication: ASTHMA
     Dosage: 1.25 MG/3ML
     Route: 055
     Dates: start: 20070201

REACTIONS (5)
  - HYPERSENSITIVITY [None]
  - INSOMNIA [None]
  - MEDICATION ERROR [None]
  - RHINORRHOEA [None]
  - TENSION HEADACHE [None]
